FAERS Safety Report 23329557 (Version 5)
Quarter: 2024Q3

REPORT INFORMATION
  Report Type: Spontaneous
  Country: US (occurrence: US)
  Receive Date: 20231222
  Receipt Date: 20240702
  Transmission Date: 20241016
  Serious: Yes (Hospitalization)
  Sender: BIOVITRUM
  Company Number: US-BIOVITRUM-2023-US-020725

PATIENT
  Age: 6 Month
  Sex: Male
  Weight: 6.16 kg

DRUGS (2)
  1. SYNAGIS [Suspect]
     Active Substance: PALIVIZUMAB
     Indication: Bronchopulmonary dysplasia
     Dosage: ONCE A MONTH (50 MG SDV/INJ PF 0.5 ML 1S)
     Route: 030
  2. SYNAGIS [Suspect]
     Active Substance: PALIVIZUMAB
     Indication: Premature baby
     Dosage: ONCE A MONTH, INJECTED 15 MG/KG INTO THE MUSCLE.
     Route: 030
     Dates: start: 20231109

REACTIONS (3)
  - Respiratory syncytial virus infection [Unknown]
  - Teething [Unknown]
  - Inappropriate schedule of product administration [Unknown]
